FAERS Safety Report 10211618 (Version 1)
Quarter: 2014Q2

REPORT INFORMATION
  Report Type: Spontaneous
  Country: US (occurrence: US)
  Receive Date: 20140602
  Receipt Date: 20140602
  Transmission Date: 20141212
  Serious: No
  Sender: FDA-Public Use
  Company Number: US-PFIZER INC-2014150458

PATIENT
  Age: 47 Year
  Sex: Female
  Weight: 56.24 kg

DRUGS (5)
  1. RELPAX [Suspect]
     Indication: MIGRAINE
     Dosage: 20 MG, 2X/DAY
     Dates: start: 201401
  2. RELPAX [Suspect]
     Dosage: 20 MG, AS NEEDED
     Route: 048
     Dates: start: 201401
  3. LOPRESSOR [Suspect]
     Indication: HYPERTENSION
     Dosage: 100 MG, UNK
  4. VICODIN [Concomitant]
     Indication: INTERVERTEBRAL DISC PROTRUSION
     Dosage: U[HYDROCODONE BITARTRATE 75 MG]/ [ACETAMINOPHEN 325 MG] 4X/DAY
  5. SOMA [Concomitant]
     Indication: MUSCLE RELAXANT THERAPY
     Dosage: UNK

REACTIONS (3)
  - Blood pressure increased [Unknown]
  - Stress [Unknown]
  - Drug ineffective [Unknown]
